FAERS Safety Report 5097400-6 (Version None)
Quarter: 2006Q3

REPORT INFORMATION
  Report Type: 
  Country: None (occurrence: None)
  Receive Date: 20060828
  Receipt Date: 20060810
  Transmission Date: 20061208
  Serious: Yes (Other)
  Sender: FDA-Public Use
  Company Number: CHPA2006US07375

PATIENT
  Age: 75 Year
  Sex: Male
  Weight: 51.7 kg

DRUGS (1)
  1. EXCEDRIN EXTRA STRENGTH (NCH) (CAFFEINE CITRATE, ACETYLSALICYLIC ACID, [Suspect]
     Indication: ARTHRITIS
     Dosage: 2 DF, UNK, ORAL
     Route: 048

REACTIONS (3)
  - CONTUSION [None]
  - DRUG ABUSER [None]
  - INCREASED TENDENCY TO BRUISE [None]
